FAERS Safety Report 8636693 (Version 24)
Quarter: 2016Q3

REPORT INFORMATION
  Report Type: Report from Study
  Country: CA (occurrence: CA)
  Receive Date: 20120626
  Receipt Date: 20160930
  Transmission Date: 20161109
  Serious: Yes (Hospitalization, Other)
  Sender: FDA-Public Use
  Company Number: PHHY2012CA045207

PATIENT
  Age: 74 Year
  Sex: Male

DRUGS (5)
  1. SANDOSTATIN [Suspect]
     Active Substance: OCTREOTIDE ACETATE
     Indication: ANGIODYSPLASIA
     Dosage: UNK, ONCE/SINGLE (TEST DOSE)
     Route: 058
     Dates: start: 20120322, end: 20120322
  2. NITRO-DUR [Concomitant]
     Active Substance: NITROGLYCERIN
     Indication: PRODUCT USED FOR UNKNOWN INDICATION
     Dosage: 0.8 MG, Q12H
     Route: 065
  3. DEXILANT [Concomitant]
     Active Substance: DEXLANSOPRAZOLE
     Indication: PRODUCT USED FOR UNKNOWN INDICATION
     Dosage: 60 MG, QD
     Route: 065
  4. METOPROLOL. [Suspect]
     Active Substance: METOPROLOL
     Indication: ANGIODYSPLASIA
     Dosage: UNK
     Route: 065
  5. SANDOSTATIN LAR DEPOT [Suspect]
     Active Substance: OCTREOTIDE ACETATE
     Indication: ANGIODYSPLASIA
     Dosage: 20 MG, QMO
     Route: 030
     Dates: start: 20120329

REACTIONS (17)
  - Heart rate decreased [Recovering/Resolving]
  - Blood pressure systolic increased [Unknown]
  - Fatigue [Unknown]
  - Renal impairment [Recovering/Resolving]
  - Body temperature decreased [Unknown]
  - Injection site pain [Unknown]
  - Product use issue [Unknown]
  - Muscle spasms [Recovered/Resolved]
  - Injection site pain [Recovered/Resolved]
  - Haemoglobin decreased [Unknown]
  - Angina pectoris [Unknown]
  - Pain in extremity [Recovered/Resolved]
  - Hypoaesthesia [Unknown]
  - Blood pressure abnormal [Unknown]
  - Faeces discoloured [Unknown]
  - Blood pressure diastolic decreased [Unknown]
  - Hypersomnia [Unknown]

NARRATIVE: CASE EVENT DATE: 20160201
